FAERS Safety Report 4957903-9 (Version None)
Quarter: 2006Q1

REPORT INFORMATION
  Report Type: 
  Country: None (occurrence: None)
  Receive Date: 20060127
  Receipt Date: 20050804
  Transmission Date: 20060701
  Serious: Yes (Hospitalization, Other)
  Sender: FDA-Public Use
  Company Number: 05-08-1375

PATIENT
  Age: 42 Year
  Sex: Female
  Weight: 73.9363 kg

DRUGS (3)
  1. CLOZAPINE [Suspect]
     Indication: SCHIZOPHRENIA, PARANOID TYPE
     Dosage: 450-700MG QD, QD, ORAL
     Route: 048
     Dates: start: 20010101, end: 20050701
  2. VALPROATE SODIUM [Concomitant]
  3. ZIPRASIDONE HYDROCHLORIDE [Concomitant]

REACTIONS (2)
  - GRANULOCYTOPENIA [None]
  - LEUKOPENIA [None]
